FAERS Safety Report 15618795 (Version 1)
Quarter: 2018Q4

REPORT INFORMATION
  Report Type: Spontaneous
  Country: CA (occurrence: CA)
  Receive Date: 20181114
  Receipt Date: 20181114
  Transmission Date: 20190205
  Serious: Yes (Hospitalization, Other)
  Sender: FDA-Public Use
  Company Number: CA-BRISTOL-MYERS SQUIBB COMPANY-BMS-2018-104621

PATIENT
  Age: 68 Year
  Sex: Male
  Weight: 95 kg

DRUGS (1)
  1. OPDIVO [Suspect]
     Active Substance: NIVOLUMAB
     Indication: LUNG NEOPLASM MALIGNANT
     Dosage: 300 MG, Q2WK
     Route: 042

REACTIONS (5)
  - C-reactive protein abnormal [Unknown]
  - Enterococcus test positive [Unknown]
  - Confusional state [Unknown]
  - Delirium [Unknown]
  - Aphasia [Unknown]
